FAERS Safety Report 6306850-9 (Version None)
Quarter: 2009Q3

REPORT INFORMATION
  Report Type: 
  Country: None (occurrence: None)
  Receive Date: 20090812
  Receipt Date: 20090731
  Transmission Date: 20100115
  Serious: Yes (Other)
  Sender: FDA-Public Use
  Company Number: BE-PFIZER INC-2009201494

PATIENT
  Age: 67 Year

DRUGS (11)
  1. CHAMPIX [Suspect]
     Indication: SMOKING CESSATION THERAPY
     Dosage: UNK
     Route: 048
     Dates: start: 20080104, end: 20080101
  2. SINTROM [Concomitant]
     Dosage: UNK
  3. MICARDIS [Concomitant]
  4. ADALAT [Concomitant]
  5. PRAXILENE [Concomitant]
  6. ELTHYRONE [Concomitant]
  7. ALLOPURINOL [Concomitant]
  8. ESCITALOPRAM [Concomitant]
  9. LIPITOR [Concomitant]
     Dosage: 20 MG, 1X/DAY
     Route: 048
  10. NEBIVOLOL [Concomitant]
     Dosage: 5 MG, 1X/DAY
     Route: 048
  11. LORAZEPAM [Concomitant]
     Dosage: 2.5 MG, 1X/DAY
     Route: 048

REACTIONS (3)
  - PETECHIAE [None]
  - PRURITUS [None]
  - URTICARIA [None]
